FAERS Safety Report 4759204-0 (Version None)
Quarter: 2005Q3

REPORT INFORMATION
  Report Type: 
  Country: None (occurrence: None)
  Receive Date: 20050831
  Receipt Date: 20050822
  Transmission Date: 20060218
  Serious: Yes (Other)
  Sender: FDA-Public Use
  Company Number: 200510268BVD

PATIENT
  Sex: Male

DRUGS (1)
  1. LEVITRA [Suspect]
     Indication: ERECTILE DYSFUNCTION
     Dosage: ORAL
     Route: 048

REACTIONS (4)
  - PHOTOPSIA [None]
  - RETINOPATHY [None]
  - VERTIGO [None]
  - VITREOUS DETACHMENT [None]
